FAERS Safety Report 24318903 (Version 2)
Quarter: 2024Q3

REPORT INFORMATION
  Report Type: Spontaneous
  Country: US (occurrence: US)
  Receive Date: 20240913
  Receipt Date: 20240923
  Transmission Date: 20241017
  Serious: No
  Sender: IPSEN
  Company Number: US-IPSEN Group, Research and Development-2024-17684

PATIENT
  Age: 60 Year
  Sex: Female

DRUGS (4)
  1. DYSPORT [Suspect]
     Active Substance: ABOBOTULINUMTOXINA
     Indication: Skin wrinkling
     Dosage: 15 UNITS TO FOREHEAD, 2 INJECTIONS
     Route: 065
     Dates: start: 20240521, end: 20240521
  2. DYSPORT [Suspect]
     Active Substance: ABOBOTULINUMTOXINA
     Indication: Skin wrinkling
     Dosage: SUBCUTANEOUSLY?GLABELLA 45IU WITHIN 6 INJECTIONS, FOREHEAD 45IU WITHIN 6 INJECTIONS, CROWS FEET 60 I
     Route: 058
     Dates: start: 20240831, end: 20240831
  3. DYSPORT [Suspect]
     Active Substance: ABOBOTULINUMTOXINA
     Indication: Skin wrinkling
  4. DYSPORT [Suspect]
     Active Substance: ABOBOTULINUMTOXINA
     Indication: Off label use

REACTIONS (3)
  - Administration site bruise [Recovering/Resolving]
  - Off label use [Unknown]
  - Incorrect route of product administration [Unknown]

NARRATIVE: CASE EVENT DATE: 20240831
